FAERS Safety Report 6168867-7 (Version None)
Quarter: 2009Q2

REPORT INFORMATION
  Report Type: 
  Country: None (occurrence: None)
  Receive Date: 20090427
  Receipt Date: 20090330
  Transmission Date: 20091009
  Serious: Yes (Other)
  Sender: FDA-Public Use
  Company Number: GB-GILEAD-E2B_00000314

PATIENT
  Sex: Female
  Weight: 69.8 kg

DRUGS (10)
  1. AMBRISENTAN [Suspect]
     Indication: PULMONARY ARTERIAL HYPERTENSION
     Route: 048
     Dates: start: 20090223, end: 20090302
  2. DIGOXIN [Concomitant]
     Indication: RIGHT VENTRICULAR FAILURE
     Dates: start: 20090223
  3. SPIRONOLACTONE [Concomitant]
     Indication: RIGHT VENTRICULAR FAILURE
  4. BUMETANIDE [Concomitant]
     Indication: RIGHT VENTRICULAR FAILURE
  5. SILDENAFIL CITRATE [Concomitant]
     Indication: PULMONARY HYPERTENSION
     Dates: start: 20080827
  6. PREDNISOLONE [Concomitant]
     Indication: RHEUMATOID ARTHRITIS
  7. WARFARIN [Concomitant]
     Indication: PULMONARY HYPERTENSION
  8. OMEPRAZOLE [Concomitant]
  9. BUPRENORPHINE HCL [Concomitant]
     Indication: ANALGESIA
  10. ADCAL D3 [Concomitant]

REACTIONS (6)
  - DIARRHOEA [None]
  - FLUID RETENTION [None]
  - OEDEMA [None]
  - RASH GENERALISED [None]
  - RASH PRURITIC [None]
  - WEIGHT INCREASED [None]
